FAERS Safety Report 6210757-5 (Version None)
Quarter: 2009Q2

REPORT INFORMATION
  Report Type: 
  Country: None (occurrence: None)
  Receive Date: 20090528
  Receipt Date: 20090528
  Transmission Date: 20091009
  Serious: Yes (Life-Threatening)
  Sender: FDA-Public Use
  Company Number: None

PATIENT
  Age: 69 Year
  Sex: Female
  Weight: 99.7913 kg

DRUGS (1)
  1. NITROFURANTOIN [Suspect]
     Indication: URINARY TRACT INFECTION
     Dosage: 1 CAPSULE 2 S DAILY PO
     Route: 048
     Dates: start: 20090518, end: 20090527

REACTIONS (6)
  - HAEMORRHAGE [None]
  - HEADACHE [None]
  - HYPERSENSITIVITY [None]
  - INCREASED TENDENCY TO BRUISE [None]
  - PARAESTHESIA [None]
  - SKIN DISCOLOURATION [None]
